FAERS Safety Report 16253436 (Version 6)
Quarter: 2019Q3

REPORT INFORMATION
  Report Type: Report from Study
  Country: DE (occurrence: DE)
  Receive Date: 20190430
  Receipt Date: 20190916
  Transmission Date: 20191004
  Serious: Yes (Hospitalization)
  Sender: FDA-Public Use
  Company Number: DE-ROCHE-2305730

PATIENT
  Age: 74 Year
  Sex: Female
  Weight: 46.9 kg

DRUGS (5)
  1. PLACEBO [Suspect]
     Active Substance: UNSPECIFIED INGREDIENT
     Indication: OVARIAN CANCER
     Dosage: DATE OF MOST RECENT DOSE OF ATEZOLIZUMAB PRIOR TO SAE ONSET:04/APR/2019
     Route: 042
     Dates: start: 20190108
  2. BEVACIZUMAB. [Suspect]
     Active Substance: BEVACIZUMAB
     Indication: OVARIAN CANCER
     Dosage: DATE OF MOST RECENT DOSE: 04/APR/2019?DOSE OF LAST BEVACIZUMAB ADMINISTERED PRIOR TO EVENT ONSET: 69
     Route: 042
     Dates: start: 20190129
  3. RAMIPRIL. [Concomitant]
     Active Substance: RAMIPRIL
     Indication: HYPERTENSION
     Route: 065
     Dates: start: 20190627
  4. CARBOPLATIN. [Suspect]
     Active Substance: CARBOPLATIN
     Indication: OVARIAN CANCER
     Dosage: 6 MILLIGRAMS PER MILLILITERXMINUTE (MG/MLXMIN)?DATE OF MOST RECENT DOSE: 04/APR/2019?DOSE OF LAST CA
     Route: 042
     Dates: start: 20190108
  5. PACLITAXEL. [Suspect]
     Active Substance: PACLITAXEL
     Indication: OVARIAN CANCER
     Dosage: DATE OF MOST RECENT DOSE: 04/APR/2019?DOSE OF LAST PACLITAXEL ADMINISTERED PRIOR TO EVENT ONSET: 253
     Route: 042
     Dates: start: 20190108

REACTIONS (1)
  - Otolithiasis [Not Recovered/Not Resolved]

NARRATIVE: CASE EVENT DATE: 20190405
